FAERS Safety Report 7701835-X (Version None)
Quarter: 2011Q3

REPORT INFORMATION
  Report Type: 
  Country: None (occurrence: None)
  Receive Date: 20110822
  Receipt Date: 20110818
  Transmission Date: 20111222
  Serious: Yes (Life-Threatening)
  Sender: FDA-Public Use
  Company Number: DE-ASTRAZENECA-2011SE49635

PATIENT
  Age: 53 Year
  Sex: Male

DRUGS (4)
  1. GINGICAIN [Suspect]
     Indication: ANAESTHESIA
  2. ARTICAINE HYDROCHLORIDE WITH EPINEPHRINE [Suspect]
     Indication: ANALGESIC THERAPY
  3. XYLOCAINE [Suspect]
     Indication: ANAESTHESIA
  4. SOPIRA [Suspect]
     Indication: ANALGESIC THERAPY

REACTIONS (1)
  - ORGAN FAILURE [None]
